FAERS Safety Report 4577439-7 (Version None)
Quarter: 2005Q1

REPORT INFORMATION
  Report Type: 
  Country: None (occurrence: None)
  Receive Date: 20050208
  Receipt Date: 20050124
  Transmission Date: 20050727
  Serious: Yes (Death)
  Sender: FDA-Public Use
  Company Number: 2004-DE-06113BY

PATIENT
  Age: 71 Year
  Sex: Female

DRUGS (3)
  1. MICARDIS HCT [Suspect]
     Dosage: PO
     Route: 048
     Dates: start: 20040205
  2. ASPIRIN [Concomitant]
  3. APROVEL (IRBESARTAN) [Concomitant]

REACTIONS (8)
  - ASPIRATION [None]
  - CEREBRAL HAEMORRHAGE [None]
  - COMA [None]
  - COMPUTERISED TOMOGRAM ABNORMAL [None]
  - HAEMORRHAGE INTRACRANIAL [None]
  - OXYGEN SATURATION DECREASED [None]
  - PULMONARY OEDEMA [None]
  - SUBARACHNOID HAEMORRHAGE [None]
